FAERS Safety Report 9760607 (Version 1)
Quarter: 2013Q4

REPORT INFORMATION
  Report Type: Spontaneous
  Country: US (occurrence: US)
  Receive Date: 20131216
  Receipt Date: 20131216
  Transmission Date: 20140711
  Serious: No
  Sender: FDA-Public Use
  Company Number: US-BIOGENIDEC-2013BI099350

PATIENT
  Sex: Female

DRUGS (13)
  1. TECFIDERA [Suspect]
     Indication: PRODUCT USED FOR UNKNOWN INDICATION
     Route: 048
  2. TECFIDERA [Suspect]
     Indication: PRODUCT USED FOR UNKNOWN INDICATION
     Route: 048
  3. DILANTIN [Concomitant]
  4. LEXAPRO [Concomitant]
  5. VITAMIN D [Concomitant]
  6. CALCIUM 500 [Concomitant]
  7. CRANBERRY [Concomitant]
  8. VITAMIN C [Concomitant]
  9. PROBIOTIC [Concomitant]
  10. MAGNESIUM [Concomitant]
  11. PRIMROSE OIL [Concomitant]
  12. ADVANCED VITAMIN B-12 [Concomitant]
  13. KELP [Concomitant]

REACTIONS (2)
  - Gastrointestinal disorder [Unknown]
  - Nausea [Not Recovered/Not Resolved]
